FAERS Safety Report 16720580 (Version 3)
Quarter: 2020Q3

REPORT INFORMATION
  Report Type: Report from Study
  Country: US (occurrence: US)
  Receive Date: 20190820
  Receipt Date: 20200720
  Transmission Date: 20201102
  Serious: Yes (Disabling, Other)
  Sender: FDA-Public Use
  Company Number: US-SA-2019SA225897

PATIENT

DRUGS (5)
  1. DIAZEPAM. [Concomitant]
     Active Substance: DIAZEPAM
     Indication: MUSCLE SPASTICITY
     Dosage: 5 MG, TID
     Route: 048
  2. ALEMTUZUMAB [Suspect]
     Active Substance: ALEMTUZUMAB
     Indication: MULTIPLE SCLEROSIS
     Dosage: 12 MG, QD
     Route: 041
     Dates: start: 20190429, end: 20190503
  3. MYRBETRIQ [Concomitant]
     Active Substance: MIRABEGRON
     Indication: HYPERTONIC BLADDER
     Dosage: 50 MG, QD
     Route: 048
  4. ATORVASTATIN [Concomitant]
     Active Substance: ATORVASTATIN
     Dosage: 10 MG, QD
     Route: 048
  5. AMPYRA [Concomitant]
     Active Substance: DALFAMPRIDINE
     Dosage: 10 MG, BID
     Route: 048

REACTIONS (9)
  - Housebound [Unknown]
  - Decreased activity [Unknown]
  - Hypoaesthesia [Unknown]
  - Facial paresis [Unknown]
  - Hemiparesis [Unknown]
  - Urinary tract infection [Unknown]
  - Gait inability [Unknown]
  - Unevaluable event [Unknown]
  - Facial paralysis [Unknown]

NARRATIVE: CASE EVENT DATE: 201908
